FAERS Safety Report 4610979-0 (Version None)
Quarter: 2005Q1

REPORT INFORMATION
  Report Type: 
  Country: None (occurrence: None)
  Receive Date: 20050317
  Receipt Date: 20050207
  Transmission Date: 20050727
  Serious: Yes (Other)
  Sender: FDA-Public Use
  Company Number: US-BRISTOL-MYERS SQUIBB COMPANY-12851507

PATIENT
  Age: 40 Year
  Sex: Female

DRUGS (9)
  1. ERBITUX [Suspect]
     Indication: COLON CANCER METASTATIC
     Dosage: 780 MG, 1ST INFUSION, STOPPED. RECHALLENGED 11-FEB-05 (780 MG), ALSO REC'D FEB-18 + FEB 25-05
     Route: 042
     Dates: start: 20050204, end: 20050204
  2. XELODA [Concomitant]
     Dosage: 1500 MG TWICE/DAY X 14 DAYS, EVERY 21 DAYS
     Dates: start: 20050204
  3. DECADRON [Concomitant]
     Dates: start: 20050204
  4. BENADRYL [Concomitant]
     Dates: start: 20050204
  5. DEMEROL [Concomitant]
     Dates: start: 20050204
  6. HYDROCORTISONE [Concomitant]
     Dates: start: 20050204
  7. ALOXI [Concomitant]
     Dates: start: 20050204
  8. ARANESP [Concomitant]
     Dates: start: 20050204
  9. TYLENOL (CAPLET) [Concomitant]
     Dates: start: 20050204

REACTIONS (4)
  - BACK PAIN [None]
  - CHILLS [None]
  - INFUSION RELATED REACTION [None]
  - NECK PAIN [None]
